FAERS Safety Report 7677314-5 (Version None)
Quarter: 2011Q3

REPORT INFORMATION
  Report Type: 
  Country: None (occurrence: None)
  Receive Date: 20110810
  Receipt Date: 20110810
  Transmission Date: 20111222
  Serious: Yes (Life-Threatening, Hospitalization, Disabling, Other)
  Sender: FDA-Public Use
  Company Number: None

PATIENT
  Age: 63 Year
  Sex: Male
  Weight: 87.0906 kg

DRUGS (1)
  1. CHANTIX [Suspect]
     Indication: SMOKING CESSATION THERAPY
     Dosage: 1 MG. 2XDAY APPROX. 5 DAYS BEFORE 5/18/10

REACTIONS (10)
  - HIP FRACTURE [None]
  - MENISCUS LESION [None]
  - PERONEAL NERVE PALSY [None]
  - FOOT FRACTURE [None]
  - ANAEMIA [None]
  - POSTERIOR TIBIAL NERVE INJURY [None]
  - PARAESTHESIA [None]
  - FALL [None]
  - LOSS OF CONSCIOUSNESS [None]
  - MUSCLE ATROPHY [None]
